FAERS Safety Report 19589937 (Version 2)
Quarter: 2021Q3

REPORT INFORMATION
  Report Type: Spontaneous
  Country: AR (occurrence: AR)
  Receive Date: 20210721
  Receipt Date: 20210723
  Transmission Date: 20211014
  Serious: Yes (Hospitalization, Other)
  Sender: FDA-Public Use
  Company Number: AR-MYLANLABS-2021M1043699

PATIENT
  Age: 50 Year
  Sex: Male

DRUGS (4)
  1. LAPENAX [Suspect]
     Active Substance: CLOZAPINE
     Indication: PSYCHOTIC DISORDER
     Dosage: 300 MILLIGRAM, QD
     Dates: start: 20120923
  2. LAPENAX [Suspect]
     Active Substance: CLOZAPINE
     Dosage: 100 MILLIGRAM, QD
     Dates: end: 20210717
  3. LITHIUM. [Concomitant]
     Active Substance: LITHIUM
     Dosage: UNK
  4. SODIUM VALPROATE [Concomitant]
     Active Substance: VALPROATE SODIUM
     Dosage: UNK

REACTIONS (8)
  - Hospitalisation [Recovered/Resolved]
  - Neutropenia [Unknown]
  - Monocyte count increased [Unknown]
  - Red blood cell count decreased [Unknown]
  - Haemoglobin decreased [Unknown]
  - Lymphocyte count increased [Unknown]
  - Haematocrit decreased [Unknown]
  - Eosinophil count decreased [Unknown]

NARRATIVE: CASE EVENT DATE: 20210623
